FAERS Safety Report 6958448-7 (Version None)
Quarter: 2010Q3

REPORT INFORMATION
  Report Type: 
  Country: None (occurrence: None)
  Receive Date: 20100831
  Receipt Date: 20100825
  Transmission Date: 20110219
  Serious: Yes (Death)
  Sender: FDA-Public Use
  Company Number: NL-TEVA-246399ISR

PATIENT
  Sex: Male

DRUGS (7)
  1. VINCRISTINE [Suspect]
     Indication: HODGKIN'S DISEASE
     Dates: start: 20100614, end: 20100614
  2. CYCLOPHOSPHAMIDE [Suspect]
     Indication: HODGKIN'S DISEASE
     Dates: start: 20100607, end: 20100607
  3. DOXORUBICIN HCL [Suspect]
     Indication: HODGKIN'S DISEASE
     Dates: start: 20100607, end: 20100607
  4. ETOPOSIDE [Suspect]
     Indication: HODGKIN'S DISEASE
     Dates: start: 20100607, end: 20100609
  5. PROCARBAZINE HYDROCHLORIDE [Suspect]
     Indication: HODGKIN'S DISEASE
     Dates: start: 20100607, end: 20100613
  6. PREDNISONE [Suspect]
     Indication: HODGKIN'S DISEASE
     Dates: start: 20100607, end: 20100615
  7. BLEOMYCIN SULFATE [Suspect]
     Indication: HODGKIN'S DISEASE
     Dates: end: 20100517

REACTIONS (1)
  - CEREBRAL INFARCTION [None]
